FAERS Safety Report 8966137 (Version 1)
Quarter: 2012Q4

REPORT INFORMATION
  Report Type: 
  Country: BR (occurrence: BR)
  Receive Date: 20121217
  Receipt Date: 20121217
  Transmission Date: 20130627
  Serious: Yes (Other)
  Sender: FDA-Public Use
  Company Number: BR-AMGEN-BRASP2012080303

PATIENT
  Age: 52 Year
  Sex: Female
  Weight: 58 kg

DRUGS (6)
  1. ENBREL [Suspect]
     Indication: RHEUMATOID ARTHRITIS
     Dosage: UNK
     Dates: start: 201002, end: 201207
  2. ENBREL [Suspect]
     Dosage: 50 mg, once weekly
     Route: 058
     Dates: start: 201207
  3. MICARDIS [Concomitant]
     Indication: HYPERTENSION
     Dosage: 40.12 mg, (1 tablet per day)
  4. MICARDIS [Concomitant]
     Dosage: 40.12 mg, (2 tablets  on day of application)
  5. TECTA [Concomitant]
     Indication: ABDOMINAL DISCOMFORT
     Dosage: 40 mg, 2x/day (every 12 hours)
  6. DEFLAZACORT [Concomitant]
     Indication: HYPERSENSITIVITY
     Dosage: 20 mg, 1x/day

REACTIONS (9)
  - Anaphylactic reaction [Unknown]
  - Blood pressure fluctuation [Unknown]
  - Gastrooesophageal reflux disease [Unknown]
  - Abdominal pain upper [Unknown]
  - Dizziness [Unknown]
  - Headache [Unknown]
  - Injection site erythema [Unknown]
  - Injection site pruritus [Unknown]
  - Injection site swelling [Unknown]
